FAERS Safety Report 17989381 (Version 1)
Quarter: 2020Q3

REPORT INFORMATION
  Report Type: Spontaneous
  Country: US (occurrence: US)
  Receive Date: 20200707
  Receipt Date: 20200707
  Transmission Date: 20201103
  Serious: Yes (Hospitalization)
  Sender: FDA-Public Use
  Company Number: US-SUPERNUS PHARMACEUTICALS, INC.-2020SUP00150

PATIENT
  Sex: Male
  Weight: 61.22 kg

DRUGS (7)
  1. FLUOXETINE [Suspect]
     Active Substance: FLUOXETINE HYDROCHLORIDE
     Indication: DEPRESSION
  2. ENSURE [Concomitant]
     Active Substance: AMINO ACIDS\DEXTROSE\ELECTROLYTES NOS\SOYBEAN OIL\VITAMINS
  3. TROKENDI XR [Suspect]
     Active Substance: TOPIRAMATE
     Dosage: 250 MG
     Route: 048
     Dates: end: 202004
  4. TROKENDI XR [Suspect]
     Active Substance: TOPIRAMATE
     Indication: SEIZURE
     Dosage: 100 MG, 1X/DAY (IN ADDITIONAL TO 200 MG TO EQUAL 300 MG TOTAL)
     Route: 048
     Dates: start: 202004
  5. MULTIVITAMIN [Concomitant]
     Active Substance: VITAMINS
  6. TROKENDI XR [Suspect]
     Active Substance: TOPIRAMATE
     Indication: SEIZURE
     Dosage: 200 MG, 1X/DAY (IN ADDITIONAL TO 100 MG TO EQUAL 300 MG TOTAL)
     Route: 048
     Dates: start: 202004
  7. TROKENDI XR [Suspect]
     Active Substance: TOPIRAMATE
     Indication: SEIZURE
     Dosage: 200 MG
     Route: 048
     Dates: start: 2014

REACTIONS (4)
  - Depression [Unknown]
  - Decreased appetite [Not Recovered/Not Resolved]
  - Generalised tonic-clonic seizure [Recovered/Resolved]
  - Drug ineffective [Recovered/Resolved]

NARRATIVE: CASE EVENT DATE: 2019
